FAERS Safety Report 22340805 (Version 1)
Quarter: 2023Q2

REPORT INFORMATION
  Report Type: Report from Study
  Country: US (occurrence: US)
  Receive Date: 20230518
  Receipt Date: 20230518
  Transmission Date: 20230722
  Serious: Yes (Hospitalization, Other)
  Sender: FDA-Public Use
  Company Number: US-JAZZ PHARMACEUTICALS-2023-US-006010

PATIENT
  Age: 24 Year
  Sex: Female

DRUGS (6)
  1. XYREM [Suspect]
     Active Substance: SODIUM OXYBATE
     Indication: Narcolepsy
     Dosage: 4.5 GRAM AT BEDTIME AND 5.25G 2.5-4 HOURS LATER
  2. XYREM [Suspect]
     Active Substance: SODIUM OXYBATE
     Indication: Cataplexy
     Dosage: 5.25G AS HER FIRST DOSE AT BEDTIME AND 9 ACCIDENTALLY FOR HER SECOND DOSE
  3. XYREM [Suspect]
     Active Substance: SODIUM OXYBATE
     Indication: Somnolence
  4. CYMBALTA [Concomitant]
     Active Substance: DULOXETINE HYDROCHLORIDE
     Indication: Product used for unknown indication
     Dosage: UNK
     Dates: start: 20140201
  5. MIRENA ESS-STEEM [Concomitant]
     Dosage: 0000
     Dates: start: 20160201
  6. MODAFINIL [Concomitant]
     Active Substance: MODAFINIL
     Indication: Narcolepsy

REACTIONS (12)
  - Head injury [Unknown]
  - Accidental overdose [Unknown]
  - Fall [Unknown]
  - Tremor [Unknown]
  - Nausea [Unknown]
  - Confusional state [Unknown]
  - Mydriasis [Unknown]
  - Vomiting [Unknown]
  - Obstructive sleep apnoea syndrome [Unknown]
  - Periodic limb movement disorder [Unknown]
  - Prescribed overdose [Unknown]
  - Treatment noncompliance [Unknown]

NARRATIVE: CASE EVENT DATE: 20210915
